FAERS Safety Report 15048571 (Version 1)
Quarter: 2018Q2

REPORT INFORMATION
  Report Type: Spontaneous
  Country: DE (occurrence: DE)
  Receive Date: 20180622
  Receipt Date: 20180622
  Transmission Date: 20180711
  Serious: Yes (Hospitalization)
  Sender: FDA-Public Use
  Company Number: DE-TEVA-2018-DE-911907

PATIENT
  Age: 60 Year
  Sex: Female

DRUGS (7)
  1. TAXILAN [Concomitant]
     Dosage: 50 MILLIGRAM DAILY;
     Dates: start: 20081002
  2. OLANZAPINE. [Suspect]
     Active Substance: OLANZAPINE
     Dosage: 25 MILLIGRAM DAILY;
     Dates: start: 20080926, end: 20081001
  3. TAXILAN [Concomitant]
     Dosage: 10 MILLIGRAM DAILY;
     Dates: start: 20081003
  4. OLANZAPINE. [Suspect]
     Active Substance: OLANZAPINE
     Dosage: 15 MILLIGRAM DAILY;
     Dates: start: 20080922
  5. OLANZAPINE. [Suspect]
     Active Substance: OLANZAPINE
     Dosage: 20 MILLIGRAM DAILY;
     Dates: start: 20080923, end: 20080925
  6. OLANZAPINE. [Suspect]
     Active Substance: OLANZAPINE
     Dosage: 5 MILLIGRAM DAILY;
     Dates: start: 20081002
  7. OLANZAPINE. [Suspect]
     Active Substance: OLANZAPINE
     Dosage: 12.5 MILLIGRAM DAILY;
     Dates: start: 20080919, end: 20080921

REACTIONS (1)
  - Hepatic function abnormal [Recovering/Resolving]

NARRATIVE: CASE EVENT DATE: 20080919
